FAERS Safety Report 5912924-4 (Version None)
Quarter: 2008Q4

REPORT INFORMATION
  Report Type: 
  Country: None (occurrence: None)
  Receive Date: 20081006
  Receipt Date: 20080909
  Transmission Date: 20090506
  Serious: Yes (Hospitalization)
  Sender: FDA-Public Use
  Company Number: WASE 0802USA01530

PATIENT
  Age: 76 Year
  Sex: Male
  Weight: 71.6683 kg

DRUGS (24)
  1. CAP VORINOSTAT [Suspect]
     Indication: ACUTE MYELOID LEUKAEMIA
     Dosage: SEE IMAGE
     Route: 048
     Dates: start: 20080212, end: 20080225
  2. CAP VORINOSTAT [Suspect]
     Indication: ACUTE MYELOID LEUKAEMIA
     Dosage: SEE IMAGE
     Route: 048
     Dates: start: 20080311, end: 20080324
  3. CAP VORINOSTAT [Suspect]
     Indication: ACUTE MYELOID LEUKAEMIA
     Dosage: SEE IMAGE
     Route: 048
     Dates: start: 20080602, end: 20080615
  4. CAP VORINOSTAT [Suspect]
     Indication: ACUTE MYELOID LEUKAEMIA
     Dosage: SEE IMAGE
     Route: 048
     Dates: start: 20080714, end: 20080727
  5. INJ DECITABINE [Suspect]
     Indication: ACUTE MYELOID LEUKAEMIA
     Dosage: SEE IMAGE
     Route: 042
     Dates: start: 20080115, end: 20080119
  6. INJ DECITABINE [Suspect]
     Indication: ACUTE MYELOID LEUKAEMIA
     Dosage: SEE IMAGE
     Route: 042
     Dates: start: 20080212, end: 20080216
  7. INJ DECITABINE [Suspect]
     Indication: ACUTE MYELOID LEUKAEMIA
     Dosage: SEE IMAGE
     Route: 042
     Dates: start: 20080311, end: 20080315
  8. INJ DECITABINE [Suspect]
     Indication: ACUTE MYELOID LEUKAEMIA
     Dosage: SEE IMAGE
     Route: 042
     Dates: start: 20080421, end: 20080425
  9. INJ DECITABINE [Suspect]
     Indication: ACUTE MYELOID LEUKAEMIA
     Dosage: SEE IMAGE
     Route: 042
     Dates: start: 20080602, end: 20080606
  10. INJ DECITABINE [Suspect]
     Indication: ACUTE MYELOID LEUKAEMIA
     Dosage: SEE IMAGE
     Route: 042
     Dates: start: 20080714, end: 20080718
  11. INJ DECITABINE [Suspect]
     Indication: ACUTE MYELOID LEUKAEMIA
     Dosage: SEE IMAGE
     Route: 042
     Dates: start: 20080825, end: 20080829
  12. COLACE [Concomitant]
  13. DIOVAN [Concomitant]
  14. FLOMAX [Concomitant]
  15. IMODIUM [Concomitant]
  16. TUMS [Concomitant]
  17. ACYCLOVIR [Concomitant]
  18. ALLOPURINOL [Concomitant]
  19. DICYCLOMINE HYDROCHLORIDE [Concomitant]
  20. MAGNESIUM (UNSPECIFIED) [Concomitant]
  21. OMEGA-3 MARINE TRIGLYCERIDES [Concomitant]
  22. ONDANSETRON [Concomitant]
  23. PANTOPRAZOLE SODIUM [Concomitant]
  24. VITAMINS (UNSPECIFIED) [Concomitant]

REACTIONS (9)
  - CATHETER THROMBOSIS [None]
  - CELLULITIS [None]
  - DEEP VEIN THROMBOSIS [None]
  - FEBRILE NEUTROPENIA [None]
  - LYMPHOCYTE COUNT ABNORMAL [None]
  - MONOCYTE COUNT ABNORMAL [None]
  - NAUSEA [None]
  - ORAL INFECTION [None]
  - WHITE BLOOD CELL COUNT DECREASED [None]
